FAERS Safety Report 9396764 (Version 1)
Quarter: 2013Q3

REPORT INFORMATION
  Report Type: Spontaneous
  Country: US (occurrence: US)
  Receive Date: 20130712
  Receipt Date: 20130712
  Transmission Date: 20140515
  Serious: Yes (Other)
  Sender: FDA-Public Use
  Company Number: US-JNJFOC-20130705675

PATIENT
  Age: 31 Year
  Sex: Male

DRUGS (1)
  1. NICOTINE POLACRILEX GUM 4 MG ORIGINAL [Suspect]
     Indication: SMOKING CESSATION THERAPY
     Route: 065
     Dates: end: 20130705

REACTIONS (4)
  - Nicotine dependence [Not Recovered/Not Resolved]
  - Intentional drug misuse [Unknown]
  - Alopecia [Not Recovered/Not Resolved]
  - Pain [Not Recovered/Not Resolved]
